FAERS Safety Report 10098161 (Version 1)
Quarter: 2014Q2

REPORT INFORMATION
  Report Type: Spontaneous
  Country: US (occurrence: None)
  Receive Date: 20140421
  Receipt Date: 20140421
  Transmission Date: 20141212
  Serious: Yes (Other)
  Sender: FDA-Public Use
  Company Number: 2014P1002917

PATIENT
  Age: 15 Year
  Sex: Male

DRUGS (3)
  1. MYORISAN 40 MG [Suspect]
     Indication: ACNE
     Route: 048
     Dates: start: 20140220, end: 20140315
  2. CLARAVIS [Suspect]
     Indication: ACNE
     Route: 048
     Dates: start: 20131120
  3. ABSORICA [Suspect]
     Indication: ACNE
     Route: 048
     Dates: start: 20131224

REACTIONS (4)
  - Weight decreased [None]
  - Decreased appetite [None]
  - Irritability [None]
  - Mood altered [None]
